FAERS Safety Report 11994688 (Version 1)
Quarter: 2016Q1

REPORT INFORMATION
  Report Type: Spontaneous
  Country: US (occurrence: US)
  Receive Date: 20160203
  Receipt Date: 20160203
  Transmission Date: 20160526
  Serious: Yes (Other)
  Sender: FDA-Public Use
  Company Number: US-UCBSA-2015037251

PATIENT

DRUGS (4)
  1. ATIVAN [Concomitant]
     Active Substance: LORAZEPAM
     Indication: AMNESIA
  2. ATIVAN [Concomitant]
     Active Substance: LORAZEPAM
     Indication: COMPLEX PARTIAL SEIZURES
     Dosage: UNK
     Dates: end: 2015
  3. KEPPRA [Suspect]
     Active Substance: LEVETIRACETAM
     Indication: DRUG WITHDRAWAL CONVULSIONS
     Dosage: UNK
     Dates: end: 2015
  4. KEPPRA [Suspect]
     Active Substance: LEVETIRACETAM
     Indication: OFF LABEL USE

REACTIONS (2)
  - Off label use [Unknown]
  - Abnormal behaviour [Unknown]
